FAERS Safety Report 9018658 (Version 1)
Quarter: 2013Q1

REPORT INFORMATION
  Report Type: Spontaneous
  Country: SE (occurrence: SE)
  Receive Date: 20130118
  Receipt Date: 20130118
  Transmission Date: 20140127
  Serious: Yes (Hospitalization)
  Sender: FDA-Public Use
  Company Number: PHHY2013SE004433

PATIENT
  Age: 7 Year
  Sex: Male

DRUGS (4)
  1. RITALINA [Suspect]
     Indication: ATTENTION DEFICIT/HYPERACTIVITY DISORDER
     Dosage: 10 MG, IN MORNING
     Route: 048
  2. RITALINA [Suspect]
     Dosage: 4 TABLETS OF 10 MG
     Route: 048
  3. RITALINA [Suspect]
     Indication: ATTENTION DEFICIT/HYPERACTIVITY DISORDER
     Dosage: 20 MG,MORNING
     Route: 048
  4. STRATTERA [Concomitant]
     Dosage: UNK UKN, UNK

REACTIONS (1)
  - Toxicity to various agents [Recovered/Resolved]
